FAERS Safety Report 9708261 (Version 1)
Quarter: 2013Q4

REPORT INFORMATION
  Report Type: Spontaneous
  Country: FR (occurrence: FR)
  Receive Date: 20131125
  Receipt Date: 20131125
  Transmission Date: 20140711
  Serious: Yes (Other)
  Sender: FDA-Public Use
  Company Number: FR-ROXANE LABORATORIES, INC.-2013-RO-01858RO

PATIENT
  Age: 68 Year
  Sex: Female

DRUGS (4)
  1. CYCLOPHOSPHAMIDE TABLETS USP [Suspect]
     Indication: CRYOGLOBULINAEMIA
     Route: 048
  2. RITUXIMAB [Suspect]
     Indication: CRYOGLOBULINAEMIA
  3. FLUDARABINE [Suspect]
     Indication: CRYOGLOBULINAEMIA
     Route: 048
  4. METHYLPREDNISOLONE [Suspect]
     Indication: PREMEDICATION
     Route: 042

REACTIONS (1)
  - Pancytopenia [Unknown]
